FAERS Safety Report 9022088 (Version 1)
Quarter: 2013Q1

REPORT INFORMATION
  Report Type: Spontaneous
  Country: FR (occurrence: FR)
  Receive Date: 20130118
  Receipt Date: 20130118
  Transmission Date: 20140127
  Serious: Yes (Hospitalization)
  Sender: FDA-Public Use
  Company Number: FR-VIIV HEALTHCARE LIMITED-B0856810A

PATIENT
  Age: 0 None
  Sex: Female

DRUGS (1)
  1. RETROVIR [Suspect]
     Indication: PROPHYLAXIS AGAINST HIV INFECTION
     Dosage: 2MGK FOUR TIMES PER DAY
     Route: 048
     Dates: start: 20120713, end: 201208

REACTIONS (8)
  - Hyperammonaemia [Recovered/Resolved]
  - Dyspnoea [Recovered/Resolved]
  - Breath sounds abnormal [Recovered/Resolved]
  - Feeling abnormal [Recovered/Resolved]
  - Eye disorder [Recovered/Resolved]
  - Muscle tightness [Recovered/Resolved]
  - Hyperlactacidaemia [Recovered/Resolved]
  - Blood alkaline phosphatase increased [Unknown]
